FAERS Safety Report 6318234-8 (Version None)
Quarter: 2009Q3

REPORT INFORMATION
  Report Type: 
  Country: None (occurrence: None)
  Receive Date: 20090820
  Receipt Date: 20090820
  Transmission Date: 20100115
  Serious: Yes (Hospitalization, Other)
  Sender: FDA-Public Use
  Company Number: None

PATIENT
  Age: 21 Year
  Sex: Male
  Weight: 47.1741 kg

DRUGS (12)
  1. ISENTRESS [Suspect]
     Indication: HIV INFECTION
     Dosage: 400 MG BID ORAL
     Route: 048
     Dates: start: 20090707, end: 20090721
  2. NORVIR [Suspect]
     Indication: HIV INFECTION
     Dosage: 100 MG QD ORAL
     Dates: start: 20090707, end: 20090721
  3. PREZISTA [Suspect]
     Indication: HIV INFECTION
     Dosage: 800 MG QD ORAL
     Route: 048
     Dates: start: 20090707, end: 20090721
  4. ALINIA [Concomitant]
  5. DAPSONE [Concomitant]
  6. FLUCONAZOLE [Concomitant]
  7. NYSTATIN [Concomitant]
  8. DIPHENOXYLATE HCL + ATROPINE SULFATE [Concomitant]
  9. DOXYCYCLINE [Concomitant]
  10. KLOR-CON M20 [Concomitant]
  11. PHENERGAN [Concomitant]
  12. ZITHROMAX [Concomitant]

REACTIONS (22)
  - ALANINE AMINOTRANSFERASE INCREASED [None]
  - ANAEMIA [None]
  - ASCITES [None]
  - ASPARTATE AMINOTRANSFERASE INCREASED [None]
  - BILIRUBIN CONJUGATED INCREASED [None]
  - BLOOD ALBUMIN DECREASED [None]
  - BLOOD ALKALINE PHOSPHATASE INCREASED [None]
  - BLOOD AMYLASE INCREASED [None]
  - BLOOD BILIRUBIN INCREASED [None]
  - BLOOD SODIUM DECREASED [None]
  - DEHYDRATION [None]
  - DIARRHOEA [None]
  - HYPOTENSION [None]
  - HYPOVOLAEMIA [None]
  - IDIOPATHIC THROMBOCYTOPENIC PURPURA [None]
  - LIPASE INCREASED [None]
  - PLEURAL EFFUSION [None]
  - PROTEIN TOTAL DECREASED [None]
  - RENAL FAILURE ACUTE [None]
  - RETROPERITONEAL ABSCESS [None]
  - RETROPERITONEAL HAEMORRHAGE [None]
  - TACHYPNOEA [None]
